FAERS Safety Report 7391194-7 (Version None)
Quarter: 2011Q2

REPORT INFORMATION
  Report Type: 
  Country: None (occurrence: None)
  Receive Date: 20110404
  Receipt Date: 20100510
  Transmission Date: 20111010
  Serious: Yes (Other)
  Sender: FDA-Public Use
  Company Number: US-PFIZER INC-2010024604

PATIENT
  Sex: Female
  Weight: 77 kg

DRUGS (4)
  1. ZOLOFT [Suspect]
     Indication: BIPOLAR DISORDER
     Dosage: 100 MG, 1X/DAY
     Route: 048
  2. LISINOPRIL [Concomitant]
     Indication: HYPERTENSION
     Dosage: UNK
  3. ESTROGENS [Concomitant]
     Dosage: UNK
  4. ZOLOFT [Suspect]
     Indication: MANIA
     Dosage: 100 MG, 2X/DAY

REACTIONS (3)
  - BLOOD CHOLESTEROL ABNORMAL [None]
  - WITHDRAWAL SYNDROME [None]
  - DEPRESSION [None]
